FAERS Safety Report 12389631 (Version 1)
Quarter: 2016Q2

REPORT INFORMATION
  Report Type: Spontaneous
  Country: US (occurrence: US)
  Receive Date: 20160520
  Receipt Date: 20160520
  Transmission Date: 20160815
  Serious: Yes (Hospitalization, Other)
  Sender: FDA-Public Use
  Company Number: US-PFIZER INC-2016265067

PATIENT
  Age: 71 Year
  Sex: Female
  Weight: 90.7 kg

DRUGS (12)
  1. LISINOPRIL, HYDROCHLOROTHIAZIDE, [Concomitant]
     Indication: HYPERTENSION
     Dosage: 1 DOSAGE FORM (LISINOPRIL 10 MG/ HYDROCHLOROTHIAZIDE 12.5 MG), 1X/DAY
  2. NAPROSYN [Suspect]
     Active Substance: NAPROXEN
     Indication: PAIN
     Dosage: UNK
     Dates: end: 201403
  3. ACYCLOVIR. [Concomitant]
     Active Substance: ACYCLOVIR
     Indication: HERPES ZOSTER
     Dosage: UNK, AS NEEDED
  4. LYRICA [Concomitant]
     Active Substance: PREGABALIN
     Indication: NEUROPATHY PERIPHERAL
     Dosage: 50 MG, ONE IN MORNING TWO IN THE EVENING
  5. CELEBREX [Concomitant]
     Active Substance: CELECOXIB
     Indication: ARTHRITIS
     Dosage: 200 MG, 1X/DAY
  6. RESTASIS [Concomitant]
     Active Substance: CYCLOSPORINE
     Indication: DRY EYE
     Dosage: 1 DROP TO BOTH EYES TWICE A DAY
     Route: 047
     Dates: start: 2014
  7. DETROL LA [Suspect]
     Active Substance: TOLTERODINE TARTRATE
     Indication: INCONTINENCE
     Dosage: 4 MG, 1X/DAY
     Route: 048
  8. MURO 128 [Concomitant]
     Active Substance: SODIUM CHLORIDE
     Indication: CORNEAL OEDEMA
     Dosage: 1 DROP TO THE RIGHT TWICE A DAY
     Route: 047
     Dates: start: 2015
  9. ASPIRIN. [Concomitant]
     Active Substance: ASPIRIN
     Indication: PROPHYLAXIS
     Dosage: 81 MG, 1X/DAY
  10. PAXIL [Concomitant]
     Active Substance: PAROXETINE HYDROCHLORIDE
     Indication: ANXIETY
     Dosage: 20 MG, 1X/DAY
  11. TYLENOL PM [Concomitant]
     Active Substance: ACETAMINOPHEN\DIPHENHYDRAMINE
     Indication: PAIN
     Dosage: 2 TABLETS AT BEDTIME
  12. ULTRAM [Concomitant]
     Active Substance: TRAMADOL HYDROCHLORIDE
     Indication: PAIN
     Dosage: 50 MG, 2X/DAY ONE IN THE MORNING AND ONE AT BEDTIME

REACTIONS (3)
  - Gastrointestinal ulcer [Unknown]
  - Drug ineffective [Not Recovered/Not Resolved]
  - Colon cancer [Recovered/Resolved]

NARRATIVE: CASE EVENT DATE: 201403
